FAERS Safety Report 22833039 (Version 5)
Quarter: 2024Q1

REPORT INFORMATION
  Report Type: Spontaneous
  Country: US (occurrence: US)
  Receive Date: 20230817
  Receipt Date: 20240105
  Transmission Date: 20240410
  Serious: No
  Sender: FDA-Public Use
  Company Number: US-PFIZER INC-PV202300120124

PATIENT
  Age: 74 Year
  Sex: Female

DRUGS (3)
  1. IBRANCE [Suspect]
     Active Substance: PALBOCICLIB
     Dosage: 50 MG, 1X/DAY
     Route: 048
  2. IBRANCE [Suspect]
     Active Substance: PALBOCICLIB
     Dosage: 75 MG EVERY OTHER DAY FOR 22 DAYS
     Route: 048
  3. IBRANCE [Suspect]
     Active Substance: PALBOCICLIB
     Dosage: 75 MG EVERY OTHER DAY
     Route: 048

REACTIONS (5)
  - Neoplasm progression [Unknown]
  - White blood cell count decreased [Unknown]
  - Off label use [Unknown]
  - Wrong technique in product usage process [Unknown]
  - Off label use [Unknown]
